FAERS Safety Report 6177626-0 (Version None)
Quarter: 2009Q2

REPORT INFORMATION
  Report Type: 
  Country: None (occurrence: None)
  Receive Date: 20090501
  Receipt Date: 20090501
  Transmission Date: 20091009
  Serious: No
  Sender: FDA-Public Use
  Company Number: None

PATIENT
  Age: 82 Year
  Sex: Male
  Weight: 70 kg

DRUGS (12)
  1. FENTANYL-100 [Suspect]
     Indication: POSTOPERATIVE CARE
     Dosage: 250MCG IV ONCE
     Route: 042
     Dates: start: 20090310
  2. MIDAZOLAM HCL [Suspect]
     Indication: POSTOPERATIVE CARE
     Dosage: 3MG IV ONCE
     Route: 042
     Dates: start: 20090310
  3. ACETAMINOPHEN [Concomitant]
  4. ASPIRIN [Concomitant]
  5. CEFAZOLIN [Concomitant]
  6. FUROSEMIDE [Concomitant]
  7. HYDRALAZINE HCL [Concomitant]
  8. MAALOX [Concomitant]
  9. MAGNESIUM SULFATE [Concomitant]
  10. MEPERIDINE HCL [Concomitant]
  11. METOCLOPRAMIDE [Concomitant]
  12. METOPROLOL [Concomitant]

REACTIONS (2)
  - DEPRESSED LEVEL OF CONSCIOUSNESS [None]
  - LETHARGY [None]
